FAERS Safety Report 10217083 (Version 1)
Quarter: 2014Q1

REPORT INFORMATION
  Report Type: Spontaneous
  Country: US (occurrence: None)
  Receive Date: 20140306
  Receipt Date: 20140306
  Transmission Date: 20141002
  Serious: Yes (Hospitalization)
  Sender: FDA-Public Use
  Company Number: 163-21880-13045041

PATIENT
  Age: 71 Year
  Sex: Male
  Weight: 61.69 kg

DRUGS (6)
  1. REVLIMIDE(LENALIDOMIDE)(10 MILLIGRAM, CAPSULES) [Suspect]
     Indication: PLASMA CELL MYELOMA
     Dosage: 15 MG, 21 IN 28 D, PO 01/14/2013 - ONGOING THERAPY DATES
     Route: 048
     Dates: start: 20130114
  2. DEXAMETHASONE (DEXAMETHASONE) [Concomitant]
  3. SAW PALMETTO (SERENOA REPENS) [Concomitant]
  4. VELCADE (BORTEZOMIB) [Concomitant]
  5. ZOMETA (ZOLEDRONIC ACID) [Concomitant]
  6. ASPIRINE (ACETYLSALICYLIC ACID) [Concomitant]

REACTIONS (1)
  - Venous thrombosis limb [None]
